FAERS Safety Report 22147535 (Version 1)
Quarter: 2023Q1

REPORT INFORMATION
  Report Type: Spontaneous
  Country: US (occurrence: None)
  Receive Date: 20230328
  Receipt Date: 20230328
  Transmission Date: 20230418
  Serious: Yes (Hospitalization)
  Sender: FDA-Public Use
  Company Number: None

PATIENT
  Age: 62 Year
  Sex: Male
  Weight: 81 kg

DRUGS (5)
  1. METHYLPREDNISOLONE [Suspect]
     Active Substance: METHYLPREDNISOLONE
     Indication: Laryngitis
     Dosage: OTHER QUANTITY : 1 TABLET(S);?FREQUENCY : 4 TIMES A DAY;?
     Route: 048
     Dates: start: 20230311, end: 20230312
  2. PROAIR [Concomitant]
  3. FLUCTICASONE SALMETEROL [Concomitant]
  4. CLARITIN [Concomitant]
  5. MULTIVITAMINS [Concomitant]

REACTIONS (3)
  - Agitation [None]
  - Blood pressure increased [None]
  - Myocardial infarction [None]

NARRATIVE: CASE EVENT DATE: 20230313
